FAERS Safety Report 19894033 (Version 2)
Quarter: 2021Q4

REPORT INFORMATION
  Report Type: Report from Study
  Country: FR (occurrence: FR)
  Receive Date: 20210928
  Receipt Date: 20211006
  Transmission Date: 20220303
  Serious: Yes (Hospitalization, Other)
  Sender: FDA-Public Use
  Company Number: FR-002147023-NVSC2020FR044136

PATIENT

DRUGS (2)
  1. RUXOLITINIB [Suspect]
     Active Substance: RUXOLITINIB
     Indication: Myelofibrosis
     Dosage: 30 MG, DAILY
     Route: 048
     Dates: start: 20191128, end: 20191217
  2. RUXOLITINIB [Suspect]
     Active Substance: RUXOLITINIB
     Dosage: 20 MG, DAILY
     Route: 048
     Dates: start: 20191217

REACTIONS (11)
  - General physical health deterioration [Unknown]
  - Anaemia [Recovered/Resolved]
  - Benign prostatic hyperplasia [Recovered/Resolved]
  - COVID-19 [Recovered/Resolved]
  - Renal failure [Recovering/Resolving]
  - White blood cell count abnormal [Unknown]
  - Neutrophil count abnormal [Unknown]
  - Hyperleukocytosis [Unknown]
  - Urinary tract infection [Recovered/Resolved]
  - Enterobacter infection [Recovered/Resolved]
  - Anaemia [Recovered/Resolved with Sequelae]

NARRATIVE: CASE EVENT DATE: 20200129
